FAERS Safety Report 11204126 (Version 2)
Quarter: 2015Q2

REPORT INFORMATION
  Report Type: Spontaneous
  Country: CA (occurrence: CA)
  Receive Date: 20150619
  Receipt Date: 20150622
  Transmission Date: 20150821
  Serious: Yes (Life-Threatening)
  Sender: FDA-Public Use
  Company Number: PHHY2015CA073678

PATIENT
  Age: 65 Year
  Sex: Male

DRUGS (1)
  1. NEORAL [Suspect]
     Active Substance: CYCLOSPORINE
     Indication: URTICARIA CHRONIC
     Dosage: UNK
     Route: 048
     Dates: start: 201504, end: 20150507

REACTIONS (7)
  - Blood pressure increased [Recovered/Resolved]
  - Off label use [Unknown]
  - Pruritus [Unknown]
  - Anxiety [Unknown]
  - Insomnia [Unknown]
  - Stress [Unknown]
  - Mental disorder [Unknown]

NARRATIVE: CASE EVENT DATE: 201504
